FAERS Safety Report 22021571 (Version 1)
Quarter: 2023Q1

REPORT INFORMATION
  Report Type: Spontaneous
  Country: US (occurrence: US)
  Receive Date: 20230222
  Receipt Date: 20230222
  Transmission Date: 20230418
  Serious: No
  Sender: FDA-Public Use
  Company Number: US-BAYER-1199841171

PATIENT
  Age: 44 Year
  Sex: Male
  Weight: 70 kg

DRUGS (1)
  1. CIPRO [Suspect]
     Active Substance: CIPROFLOXACIN HYDROCHLORIDE
     Indication: Sinusitis
     Dosage: 1000 MG (DAILY DOSE), , ORAL
     Route: 048
     Dates: start: 19980801

REACTIONS (2)
  - Micturition frequency decreased [Unknown]
  - Pollakiuria [Unknown]

NARRATIVE: CASE EVENT DATE: 19980804
